FAERS Safety Report 23942872 (Version 1)
Quarter: 2024Q2

REPORT INFORMATION
  Report Type: Spontaneous
  Country: US (occurrence: US)
  Receive Date: 20240605
  Receipt Date: 20240605
  Transmission Date: 20240716
  Serious: Yes (Hospitalization)
  Sender: FDA-Public Use
  Company Number: US-RIGEL Pharmaceuticals, INC-2024OLU000054

PATIENT
  Age: 82 Year
  Sex: Female
  Weight: 103.4 kg

DRUGS (3)
  1. REZLIDHIA [Suspect]
     Active Substance: OLUTASIDENIB
     Indication: Chronic obstructive pulmonary disease
     Dosage: 150 MG, BID
     Route: 048
     Dates: start: 20240222
  2. TIBSOVO [Concomitant]
     Active Substance: IVOSIDENIB
     Indication: Myelodysplastic syndrome
     Dosage: 250 MG, QD
     Route: 048
     Dates: start: 20221128
  3. AMLODIPINE [Concomitant]
     Active Substance: AMLODIPINE BESYLATE
     Indication: Product used for unknown indication
     Dosage: 10 MG, QD
     Dates: start: 2024

REACTIONS (3)
  - Sternal fracture [Unknown]
  - Resuscitation [Unknown]
  - Off label use [Unknown]

NARRATIVE: CASE EVENT DATE: 20240222
